FAERS Safety Report 9998930 (Version 1)
Quarter: 2014Q1

REPORT INFORMATION
  Report Type: Spontaneous
  Country: ZA (occurrence: None)
  Receive Date: 20140310
  Receipt Date: 20140310
  Transmission Date: 20141002
  Serious: Yes (Death)
  Sender: FDA-Public Use
  Company Number: 2014ZA00186

PATIENT
  Sex: 0

DRUGS (3)
  1. STAVUDINE [Suspect]
     Indication: HIV INFECTION
     Dosage: 30 MG IF WEIGHT { 60 KG OR 40 MG IF WEIGHT } 60 KG
  2. LAMIVUDINE [Suspect]
  3. EFAVIRENZ (EFAVIRENZ) [Suspect]

REACTIONS (1)
  - Lymphoproliferative disorder [None]
